FAERS Safety Report 8510009-4 (Version None)
Quarter: 2012Q2

REPORT INFORMATION
  Report Type: 
  Country: None (occurrence: None)
  Receive Date: 20120405
  Receipt Date: 20090624
  Transmission Date: 20120825
  Serious: Yes (Hospitalization)
  Sender: FDA-Public Use
  Company Number: PHEH2009US06681

PATIENT
  Age: 87 Year
  Sex: Female
  Weight: 77.6 kg

DRUGS (1)
  1. RECLAST [Suspect]
     Dates: start: 20090507

REACTIONS (1)
  - RENAL FAILURE ACUTE [None]
